FAERS Safety Report 14386498 (Version 1)
Quarter: 2018Q1

REPORT INFORMATION
  Report Type: Spontaneous
  Country: US (occurrence: US)
  Receive Date: 20180115
  Receipt Date: 20180115
  Transmission Date: 20180509
  Serious: Yes (Other)
  Sender: FDA-Public Use
  Company Number: US-SA-2017SA132226

PATIENT
  Age: 60 Year
  Sex: Female
  Weight: 48.53 kg

DRUGS (9)
  1. BENADRYL [Concomitant]
     Active Substance: DIPHENHYDRAMINE HYDROCHLORIDE
  2. TAXOTERE [Suspect]
     Active Substance: DOCETAXEL
     Indication: OVARIAN CANCER
     Route: 051
     Dates: start: 20120501, end: 20120501
  3. PARAPLATIN [Concomitant]
     Active Substance: CARBOPLATIN
  4. PLATINOL [Concomitant]
     Active Substance: CISPLATIN
  5. TAXOL [Concomitant]
     Active Substance: PACLITAXEL
  6. AVASTIN [Concomitant]
     Active Substance: BEVACIZUMAB
  7. TAXOTERE [Suspect]
     Active Substance: DOCETAXEL
     Indication: OVARIAN CANCER
     Route: 051
     Dates: start: 20130402, end: 20130402
  8. HYCAMTIN [Concomitant]
     Active Substance: TOPOTECAN HYDROCHLORIDE
  9. ALOXI [Concomitant]
     Active Substance: PALONOSETRON HYDROCHLORIDE

REACTIONS (2)
  - Alopecia [Not Recovered/Not Resolved]
  - Psychological trauma [Unknown]

NARRATIVE: CASE EVENT DATE: 20120522
